FAERS Safety Report 22534063 (Version 1)
Quarter: 2023Q2

REPORT INFORMATION
  Report Type: Report from Study
  Country: US (occurrence: US)
  Receive Date: 20230608
  Receipt Date: 20230608
  Transmission Date: 20230722
  Serious: No
  Sender: FDA-Public Use
  Company Number: US-002147023-NVSC2023US126537

PATIENT
  Sex: Female
  Weight: 55 kg

DRUGS (8)
  1. ONDANSETRON [Suspect]
     Active Substance: ONDANSETRON
     Indication: Psoriatic arthropathy
     Dosage: UNK
     Route: 065
  2. MYCOPHENOLATE MOFETIL [Suspect]
     Active Substance: MYCOPHENOLATE MOFETIL
     Indication: Psoriatic arthropathy
     Dosage: UNK
     Route: 065
  3. CYCLOBENZAPRINE [Suspect]
     Active Substance: CYCLOBENZAPRINE
     Indication: Psoriatic arthropathy
     Dosage: UNK
     Route: 065
  4. PRAVASTATIN SODIUM [Suspect]
     Active Substance: PRAVASTATIN SODIUM
     Indication: Psoriatic arthropathy
     Dosage: UNK
     Route: 065
  5. ALBUTEROL SULFATE [Suspect]
     Active Substance: ALBUTEROL SULFATE
     Indication: Psoriatic arthropathy
     Dosage: UNK
     Route: 065
  6. GABAPENTIN [Suspect]
     Active Substance: GABAPENTIN
     Indication: Psoriatic arthropathy
     Dosage: UNK
     Route: 065
  7. PREDNISONE [Suspect]
     Active Substance: PREDNISONE
     Indication: Psoriatic arthropathy
     Dosage: UNK
     Route: 065
  8. VITAMIN D [Suspect]
     Active Substance: VITAMIN D NOS
     Indication: Psoriatic arthropathy
     Dosage: 2000
     Route: 065

REACTIONS (8)
  - Vulvovaginal pruritus [Unknown]
  - Blood creatinine increased [Unknown]
  - Blood alkaline phosphatase increased [Unknown]
  - Glomerular filtration rate decreased [Unknown]
  - C-reactive protein increased [Unknown]
  - Red blood cell sedimentation rate increased [Unknown]
  - Mean cell haemoglobin concentration increased [Unknown]
  - Product use in unapproved indication [Unknown]
